FAERS Safety Report 23113326 (Version 1)
Quarter: 2023Q4

REPORT INFORMATION
  Report Type: Spontaneous
  Country: CN (occurrence: CN)
  Receive Date: 20231027
  Receipt Date: 20231027
  Transmission Date: 20240109
  Serious: Yes (Other)
  Sender: FDA-Public Use
  Company Number: CN-BoehringerIngelheim-2023-BI-269302

PATIENT
  Age: 75 Year
  Sex: Female

DRUGS (2)
  1. ATROVENT [Suspect]
     Active Substance: IPRATROPIUM BROMIDE
     Indication: Drug therapy
     Route: 055
     Dates: start: 20230916, end: 20230916
  2. BUDESONIDE [Concomitant]
     Active Substance: BUDESONIDE
     Indication: Drug therapy
     Dosage: DOSAGE FORM: INHALATION SUSPENSION.
     Route: 055
     Dates: start: 20230916, end: 20230916

REACTIONS (3)
  - Palpitations [Recovered/Resolved]
  - Chest discomfort [Recovered/Resolved]
  - Arrhythmia [Recovered/Resolved]

NARRATIVE: CASE EVENT DATE: 20230916
